FAERS Safety Report 5707258-7 (Version None)
Quarter: 2008Q2

REPORT INFORMATION
  Report Type: 
  Country: None (occurrence: None)
  Receive Date: 20080414
  Receipt Date: 20080414
  Transmission Date: 20081010
  Serious: Yes (Hospitalization)
  Sender: FDA-Public Use
  Company Number: None

PATIENT
  Age: 48 Year
  Sex: Female
  Weight: 73 kg

DRUGS (4)
  1. LISINOPRIL [Suspect]
     Indication: HYPERTENSION
     Dates: start: 20070401, end: 20080402
  2. SOLU-MEDROL [Concomitant]
  3. BENADRYL [Concomitant]
  4. EPINEPHRINE [Concomitant]

REACTIONS (1)
  - ANGIOEDEMA [None]
